FAERS Safety Report 26018812 (Version 1)
Quarter: 2025Q4

REPORT INFORMATION
  Report Type: Spontaneous
  Country: US (occurrence: US)
  Receive Date: 20251110
  Receipt Date: 20251110
  Transmission Date: 20260118
  Serious: Yes (Other)
  Sender: COOPERSURGICAL
  Company Number: US-COOPERSURGICAL, INC.-2025CPS007754

PATIENT
  Age: 32 Year
  Sex: Female
  Weight: 98.866 kg

DRUGS (1)
  1. PARAGARD T 380A [Suspect]
     Active Substance: COPPER
     Indication: Contraception
     Dosage: UNK
     Route: 015
     Dates: start: 20120322

REACTIONS (16)
  - Ectopic pregnancy with contraceptive device [Recovered/Resolved]
  - Tubal rupture [Recovered/Resolved]
  - Haemoperitoneum [Recovered/Resolved]
  - Salpingectomy [Recovered/Resolved]
  - Reproductive complication associated with device [Not Recovered/Not Resolved]
  - Device breakage [Not Recovered/Not Resolved]
  - Foreign body in reproductive tract [Not Recovered/Not Resolved]
  - Complication of device removal [Not Recovered/Not Resolved]
  - Embedded device [Not Recovered/Not Resolved]
  - Drug ineffective [Unknown]
  - Emotional distress [Unknown]
  - Complication associated with device [Recovered/Resolved]
  - Endometrial thickening [Unknown]
  - Anaemia [Unknown]
  - Device expulsion [Not Recovered/Not Resolved]
  - Abdominal pain [Unknown]

NARRATIVE: CASE EVENT DATE: 20120420
